FAERS Safety Report 23220972 (Version 3)
Quarter: 2024Q4

REPORT INFORMATION
  Report Type: Report from Study
  Country: US (occurrence: US)
  Receive Date: 20231123
  Receipt Date: 20241230
  Transmission Date: 20250114
  Serious: Yes (Death)
  Sender: HELSINN HEALTHCARE
  Company Number: US-HBP-2023US030041

PATIENT
  Sex: Male

DRUGS (3)
  1. VALCHLOR [Suspect]
     Active Substance: MECHLORETHAMINE
     Indication: Cutaneous T-cell lymphoma
     Dosage: THIN FILM, QD
     Route: 061
     Dates: start: 20231101, end: 202311
  2. VALCHLOR [Suspect]
     Active Substance: MECHLORETHAMINE
     Dosage: UNK, UNKNOWN
     Route: 061
     Dates: start: 202311, end: 202311
  3. VALCHLOR [Suspect]
     Active Substance: MECHLORETHAMINE
     Dosage: THIN FILM, QD
     Route: 061

REACTIONS (4)
  - Death [Fatal]
  - Application site erythema [Recovering/Resolving]
  - Drug effect less than expected [Unknown]
  - Dermatitis [Unknown]

NARRATIVE: CASE EVENT DATE: 20240101
